FAERS Safety Report 16380122 (Version 1)
Quarter: 2019Q2

REPORT INFORMATION
  Report Type: Spontaneous
  Country: DE (occurrence: DE)
  Receive Date: 20190601
  Receipt Date: 20190601
  Transmission Date: 20190711
  Serious: Yes (Hospitalization, Other)
  Sender: FDA-Public Use
  Company Number: DE-AUROBINDO-AUR-APL-2018-017471

PATIENT

DRUGS (11)
  1. OXALIPLATIN. [Suspect]
     Active Substance: OXALIPLATIN
     Indication: COLORECTAL CANCER METASTATIC
     Dosage: DAILY DOSE: 85 MG/M2 MILLIGRAM(S)/SQ. METER EVERY 2 WEEKS
     Route: 042
     Dates: start: 20170526
  2. CALCIUM [Concomitant]
     Active Substance: CALCIUM
     Indication: PRODUCT USED FOR UNKNOWN INDICATION
     Dosage: UNK, DOSE NOT SPECIFIED (ADDED TO INFUSION OF STEROFUNDIN)
     Route: 065
  3. MAGNESIUM [Concomitant]
     Active Substance: MAGNESIUM
     Indication: PRODUCT USED FOR UNKNOWN INDICATION
     Dosage: UNK, UNK, DOSE NOT SPECIFIED (ADDED TO INFUSION OF STEROFUNDIN)
     Route: 065
  4. PALONOSETRON. [Concomitant]
     Active Substance: PALONOSETRON HYDROCHLORIDE
     Indication: PRODUCT USED FOR UNKNOWN INDICATION
     Dosage: UNK, 250 (UNITS NOT SPECIFIED)
     Route: 042
  5. EMEND [Concomitant]
     Active Substance: APREPITANT
     Indication: PRODUCT USED FOR UNKNOWN INDICATION
     Dosage: UNK
     Route: 065
  6. FLUOROURACIL. [Suspect]
     Active Substance: FLUOROURACIL
     Indication: COLORECTAL CANCER METASTATIC
     Dosage: 2800 MILLIGRAM/SQ. METER, DAILY DOSE: 2800 MG/M2 MILLIGRAM(S)/SQ. METER EVERY 2 WEEKS
     Route: 042
     Dates: start: 20170526
  7. GLUCOSE [Concomitant]
     Active Substance: DEXTROSE
     Indication: PRODUCT USED FOR UNKNOWN INDICATION
     Dosage: UNK, DOSE NOT SPECIFIED (ADDED TO INFUSION OF STEROFUNDIN)
     Route: 065
  8. FOLINIC ACID [Suspect]
     Active Substance: LEUCOVORIN
     Indication: COLORECTAL CANCER METASTATIC
     Dosage: 200 MILLIGRAM/SQ. METER, CYCLICAL, DAILY DOSE: 200 MG/M2 MILLIGRAM(S)/SQ. METER EVERY 2 WEEKS
     Route: 042
     Dates: start: 20170526
  9. ERBITUX [Suspect]
     Active Substance: CETUXIMAB
     Dosage: 500 MILLIGRAM/SQ. METER, DAILY DOSE: 500 MG/M2 MILLIGRAM(S)/SQ. METER EVERY 2 WEEKS
     Route: 042
     Dates: start: 20170612, end: 20170612
  10. ERBITUX [Suspect]
     Active Substance: CETUXIMAB
     Indication: COLORECTAL CANCER METASTATIC
     Dosage: UNK, 2 WEEKS
     Route: 042
     Dates: start: 20170630
  11. STEROFUNDIN [Concomitant]
     Active Substance: CALCIUM CHLORIDE\MAGNESIUM CHLORIDE\POTASSIUM CHLORIDE\SODIUM ACETATE\SODIUM CHLORIDE
     Indication: PRODUCT USED FOR UNKNOWN INDICATION
     Dosage: UNK
     Route: 042

REACTIONS (4)
  - Leukopenia [Recovered/Resolved]
  - Stomatitis [Recovered/Resolved]
  - Staphylococcal infection [Not Recovered/Not Resolved]
  - Off label use [Unknown]

NARRATIVE: CASE EVENT DATE: 20170621
